FAERS Safety Report 5509909-9 (Version None)
Quarter: 2007Q4

REPORT INFORMATION
  Report Type: 
  Country: None (occurrence: None)
  Receive Date: 20071108
  Receipt Date: 20071101
  Transmission Date: 20080405
  Serious: Yes (Hospitalization)
  Sender: FDA-Public Use
  Company Number: US-ASTRAZENECA-2007UW25369

PATIENT
  Age: 91 Year
  Sex: Female
  Weight: 54.4 kg

DRUGS (5)
  1. PULMICORT [Suspect]
     Indication: ASTHMA
     Dosage: 0.5MG/2ML
     Route: 055
     Dates: start: 20070101
  2. PULMICORT [Suspect]
     Dosage: 0.5MG/2ML
     Route: 055
     Dates: start: 20050101, end: 20070101
  3. BLOOD PRESSURE MEDICATION [Concomitant]
  4. XOPENEX [Concomitant]
     Dosage: REDUCED DOSE TO .63 MG IN 2007
     Dates: start: 20070101
  5. XOPENEX [Concomitant]
     Dosage: REDUCED DOSE TO .63 MG IN 2007
     Dates: start: 20050101, end: 20070101

REACTIONS (4)
  - DYSPNOEA [None]
  - HEART RATE INCREASED [None]
  - ORAL MUCOSAL BLISTERING [None]
  - PULMONARY THROMBOSIS [None]
